FAERS Safety Report 5853836-4 (Version None)
Quarter: 2008Q3

REPORT INFORMATION
  Report Type: 
  Country: None (occurrence: None)
  Receive Date: 20080822
  Receipt Date: 20080814
  Transmission Date: 20090109
  Serious: Yes (Hospitalization)
  Sender: FDA-Public Use
  Company Number: RU-ABBOTT-08P-251-0470759-00

PATIENT
  Age: 57 Year
  Sex: Female

DRUGS (4)
  1. DEPAKENE [Suspect]
     Indication: EPILEPSY
     Route: 048
     Dates: start: 20000101, end: 20050101
  2. DEPAKENE [Suspect]
     Route: 048
     Dates: start: 20050101, end: 20080613
  3. DEPAKENE [Suspect]
     Route: 048
     Dates: start: 20080613, end: 20080614
  4. DEPAKENE [Suspect]
     Route: 048
     Dates: start: 20080704

REACTIONS (2)
  - CONVULSION [None]
  - PHARMACEUTICAL PRODUCT COUNTERFEIT [None]
